FAERS Safety Report 4584158-X (Version None)
Quarter: 2005Q1

REPORT INFORMATION
  Report Type: 
  Country: None (occurrence: None)
  Receive Date: 20050125
  Receipt Date: 20041011
  Transmission Date: 20050727
  Serious: No
  Sender: FDA-Public Use
  Company Number: USA041080834

PATIENT
  Age: 72 Year
  Sex: Female

DRUGS (1)
  1. FORTEO [Suspect]
     Indication: OSTEOPOROSIS
     Dosage: 20 UG DAY
     Dates: start: 20040401

REACTIONS (6)
  - ARTHRALGIA [None]
  - ASTHENIA [None]
  - BLOOD SODIUM DECREASED [None]
  - BONE PAIN [None]
  - HEAD DISCOMFORT [None]
  - NAUSEA [None]
